FAERS Safety Report 5738841 (Version 2)
Quarter: 2012Q4

REPORT INFORMATION
  Report Type: 
  Country: JP (occurrence: JP)
  Receive Date: 20050215
  Receipt Date: 20120927
  Transmission Date: 20130627
  Serious: Yes (Death)
  Sender: FDA-Public Use
  Company Number: JP-JNJFOC-20050200681

PATIENT
  Age: 35 Year
  Sex: Female
  Weight: 37 kg

DRUGS (6)
  1. REMICADE [Suspect]
     Indication: CROHN^S DISEASE
     Route: 042
     Dates: start: 20030808
  2. REMICADE [Suspect]
     Indication: CROHN^S DISEASE
     Route: 042
     Dates: start: 20030703
  3. REMICADE [Suspect]
     Indication: CROHN^S DISEASE
     Route: 042
     Dates: start: 20030619
  4. PREDONINE [Concomitant]
     Indication: CROHN^S DISEASE
     Route: 048
  5. PENTASA [Concomitant]
     Indication: CROHN^S DISEASE
     Route: 048
  6. TOTAL PARENTERAL NUTRITION [Concomitant]

REACTIONS (1)
  - Completed suicide [Fatal]
